FAERS Safety Report 18588939 (Version 1)
Quarter: 2020Q4

REPORT INFORMATION
  Report Type: Report from Study
  Country: US (occurrence: US)
  Receive Date: 20201208
  Receipt Date: 20201208
  Transmission Date: 20210114
  Serious: Yes (Other)
  Sender: FDA-Public Use
  Company Number: US-GILEAD-2020-0507179

PATIENT
  Age: 73 Year
  Sex: Female

DRUGS (1)
  1. AZTREONAM LYSINE [Suspect]
     Active Substance: AZTREONAM LYSINE
     Indication: CYSTIC FIBROSIS
     Dosage: 75 MG, TID, EVERY 8 HOURS FOR 28 DAYS THEN 28 DAYS OFF
     Route: 055
     Dates: start: 20190507

REACTIONS (5)
  - Abdominal pain upper [Recovering/Resolving]
  - Pulmonary haemorrhage [Recovering/Resolving]
  - Pneumonia [Recovering/Resolving]
  - Haemoglobin decreased [Recovering/Resolving]
  - Haematocrit decreased [Recovering/Resolving]
